FAERS Safety Report 8738182 (Version 2)
Quarter: 2012Q4

REPORT INFORMATION
  Report Type: 
  Country: JP (occurrence: JP)
  Receive Date: 20120823
  Receipt Date: 20120929
  Transmission Date: 20130627
  Serious: No
  Sender: FDA-Public Use
  Company Number: JP-009507513-1208JPN006140

PATIENT

DRUGS (2)
  1. PEGINTRON [Suspect]
     Indication: HEPATITIS C
     Dosage: UNK
     Route: 058
  2. REBETOL [Suspect]
     Indication: HEPATITIS C
     Dosage: 200 mg, bid
     Route: 048

REACTIONS (1)
  - Haemoglobin decreased [Recovering/Resolving]
